FAERS Safety Report 19974454 (Version 4)
Quarter: 2021Q4

REPORT INFORMATION
  Report Type: Report from Study
  Country: NL (occurrence: NL)
  Receive Date: 20211020
  Receipt Date: 20211216
  Transmission Date: 20220303
  Serious: Yes (Hospitalization, Other)
  Sender: FDA-Public Use
  Company Number: NVSC2021NL234455

PATIENT
  Sex: Male
  Weight: 84 kg

DRUGS (7)
  1. ASCIMINIB [Suspect]
     Active Substance: ASCIMINIB
     Indication: Chronic myeloid leukaemia
     Dosage: 200 MG, BID
     Route: 048
     Dates: start: 20210920, end: 20211011
  2. ASCIMINIB [Suspect]
     Active Substance: ASCIMINIB
     Dosage: UNK
     Route: 065
  3. CYCLOSPORINE [Suspect]
     Active Substance: CYCLOSPORINE
     Indication: Graft versus host disease
     Dosage: 175 MG, BID
     Route: 065
     Dates: start: 20210813
  4. NEORAL [Suspect]
     Active Substance: CYCLOSPORINE
     Indication: Product used for unknown indication
     Dosage: UNK
     Route: 065
     Dates: end: 20211022
  5. VALACYCLOVIR HYDROCHLORIDE [Concomitant]
     Active Substance: VALACYCLOVIR HYDROCHLORIDE
     Indication: Allogenic stem cell transplantation
     Dosage: 500 MG, BID (START DATE: 25 JUN)
     Route: 048
  6. POSACONAZOLE [Concomitant]
     Active Substance: POSACONAZOLE
     Indication: Allogenic stem cell transplantation
     Dosage: 300 MG, QD (START DATE: 13 AUG)
     Route: 048
  7. PREDNISONE [Concomitant]
     Active Substance: PREDNISONE
     Indication: Graft versus host disease
     Dosage: 10 MG, QD (START DATE: 10 SEP)
     Route: 048

REACTIONS (8)
  - Nausea [Recovered/Resolved]
  - Renal failure [Recovered/Resolved]
  - Dehydration [Recovered/Resolved]
  - Urine output decreased [Recovered/Resolved]
  - Blood creatinine increased [Recovered/Resolved]
  - Creatinine renal clearance decreased [Recovered/Resolved]
  - Haemoglobin decreased [Unknown]
  - Hypophagia [Recovered/Resolved]
